FAERS Safety Report 25401418 (Version 2)
Quarter: 2025Q2

REPORT INFORMATION
  Report Type: Spontaneous
  Country: IT (occurrence: IT)
  Receive Date: 20250605
  Receipt Date: 20250610
  Transmission Date: 20250717
  Serious: Yes (Other)
  Sender: PFIZER
  Company Number: None

PATIENT
  Age: 17 Year
  Sex: Male
  Weight: 60 kg

DRUGS (4)
  1. MEROPENEM [Suspect]
     Active Substance: MEROPENEM
     Indication: Pyrexia
     Dosage: 2 MG, DAILY
     Route: 042
     Dates: start: 20250518
  2. VANCOMYCIN [Concomitant]
     Active Substance: VANCOMYCIN
     Indication: Pyrexia
     Dosage: 1 G, DAILY
     Route: 042
     Dates: start: 20250518
  3. ASPIRIN [Concomitant]
     Active Substance: ASPIRIN
     Indication: Basilar artery thrombosis
     Dosage: 100 MG, DAILY
     Route: 048
     Dates: start: 20250517
  4. REMIFENTANIL [Concomitant]
     Active Substance: REMIFENTANIL
     Indication: Light anaesthesia
     Dosage: 2 MG, DAILY
     Route: 042
     Dates: start: 20250507

REACTIONS (4)
  - Hepatotoxicity [Recovered/Resolved]
  - Rash [Recovered/Resolved]
  - Off label use [Unknown]
  - Off label use [Unknown]

NARRATIVE: CASE EVENT DATE: 20250518
